FAERS Safety Report 17032445 (Version 1)
Quarter: 2019Q4

REPORT INFORMATION
  Report Type: Spontaneous
  Country: US (occurrence: US)
  Receive Date: 20191114
  Receipt Date: 20191114
  Transmission Date: 20200122
  Serious: Yes (Other)
  Sender: FDA-Public Use
  Company Number: US-GLAXOSMITHKLINE-US2019204795

PATIENT
  Sex: Female

DRUGS (2)
  1. PROZAC [Suspect]
     Active Substance: FLUOXETINE HYDROCHLORIDE
     Indication: PRODUCT USED FOR UNKNOWN INDICATION
     Dosage: UNK
     Route: 065
     Dates: start: 1997
  2. WELLBUTRIN SR [Suspect]
     Active Substance: BUPROPION HYDROCHLORIDE
     Indication: PRODUCT USED FOR UNKNOWN INDICATION
     Dosage: UNK
     Route: 065
     Dates: start: 1997

REACTIONS (14)
  - Renal failure [Unknown]
  - Osteopenia [Unknown]
  - Fibromyalgia [Unknown]
  - Oestrogen deficiency [Unknown]
  - Cervix carcinoma [Unknown]
  - Biopsy cervix [Unknown]
  - Decreased appetite [Unknown]
  - Hysterectomy [Unknown]
  - Dental caries [Unknown]
  - Cervix disorder [Unknown]
  - Bone disorder [Unknown]
  - Osteoarthritis [Unknown]
  - Dry mouth [Unknown]
  - Tooth loss [Unknown]

NARRATIVE: CASE EVENT DATE: 2001
